FAERS Safety Report 9821022 (Version 1)
Quarter: 2014Q1

REPORT INFORMATION
  Report Type: Spontaneous
  Country: US (occurrence: US)
  Receive Date: 20140116
  Receipt Date: 20140116
  Transmission Date: 20141002
  Serious: Yes (Hospitalization)
  Sender: FDA-Public Use
  Company Number: US-BAYER-2014-007374

PATIENT
  Age: 29 Year
  Sex: Female
  Weight: 78.46 kg

DRUGS (5)
  1. YAZ [Suspect]
  2. ZYPREXA [Concomitant]
     Dosage: 10 MG, HS
     Route: 048
  3. LAMICTAL [Concomitant]
     Dosage: 2 MG, BID
     Route: 048
  4. IBUPROFEN [Concomitant]
  5. VICODIN [Concomitant]

REACTIONS (1)
  - Pulmonary embolism [None]
